FAERS Safety Report 4479774-X (Version None)
Quarter: 2004Q4

REPORT INFORMATION
  Report Type: 
  Country: None (occurrence: None)
  Receive Date: 20041015
  Receipt Date: 20040930
  Transmission Date: 20050328
  Serious: Yes (Death, Hospitalization)
  Sender: FDA-Public Use
  Company Number: 2003SE01306

PATIENT
  Age: 72 Year
  Sex: Female

DRUGS (9)
  1. ATENOLOL [Suspect]
     Dates: start: 20021104
  2. NORVASC [Suspect]
     Indication: CORONARY ARTERY DISEASE
     Dosage: 5 MG DAILY PO
     Route: 048
     Dates: start: 20021204
  3. NORVASC [Suspect]
     Indication: HYPERTENSION
     Dosage: 5 MG DAILY PO
     Route: 048
     Dates: start: 20021204
  4. NORVASC [Suspect]
     Indication: MYOCARDIAL INFARCTION
     Dosage: 5 MG DAILY PO
     Route: 048
     Dates: start: 20021204
  5. ISOSORBIDE MONONITRATE [Concomitant]
  6. CHLORTALIDONE [Concomitant]
  7. IBUPROFEN [Concomitant]
  8. RANITIDINE [Concomitant]
  9. LUBOR [Concomitant]

REACTIONS (2)
  - CHEST PAIN [None]
  - MYOCARDIAL INFARCTION [None]
